FAERS Safety Report 24218421 (Version 1)
Quarter: 2024Q3

REPORT INFORMATION
  Report Type: Spontaneous
  Country: ES (occurrence: None)
  Receive Date: 20240816
  Receipt Date: 20240816
  Transmission Date: 20241017
  Serious: Yes (Hospitalization)
  Sender: ASTRAZENECA
  Company Number: 2024A181248

PATIENT
  Age: 76 Year
  Sex: Male

DRUGS (10)
  1. OSIMERTINIB [Suspect]
     Active Substance: OSIMERTINIB
     Indication: Lung adenocarcinoma
     Dosage: 80.0 MG C/24 H
     Route: 048
     Dates: start: 20240111
  2. SINTROM [Concomitant]
     Active Substance: ACENOCOUMAROL
     Indication: Atrial fibrillation
     Dosage: 4.0 MG CE
     Route: 048
     Dates: start: 20180315
  3. METOCLOPRAMIDA KERN PHARMA [Concomitant]
     Indication: Lung adenocarcinoma
     Dosage: 10.0 MG A-DECOCE
     Route: 048
     Dates: start: 20240111
  4. OMEPRAZOL SANDOZ FARMAC?UTICA 20 MG C?PSULAS DURAS GASTRORRESISTENT... [Concomitant]
     Indication: Dyspepsia
     Dosage: 20.0 MG A-DE
     Route: 048
     Dates: start: 20070124
  5. URSOBILANE [Concomitant]
     Indication: Cholangitis
     Dosage: 600.0 MG DECE
     Route: 048
     Dates: start: 20220922
  6. DUODART 0 [Concomitant]
     Indication: Benign prostatic hyperplasia
     Dosage: 1.0 CAPS D-DE
     Route: 048
     Dates: start: 20140523
  7. DOXAZOSIN MESYLATE [Concomitant]
     Active Substance: DOXAZOSIN MESYLATE
     Indication: Benign prostatic hyperplasia
     Dosage: 8.0 MG DECE
     Route: 048
     Dates: start: 20070123
  8. CARVEDILOL CINFA [Concomitant]
     Indication: Atrial fibrillation
     Dosage: 12.5 MG C/12 H
     Route: 048
     Dates: start: 20230111
  9. CHOLECALCIFEROL [Concomitant]
     Active Substance: CHOLECALCIFEROL
     Indication: Lung adenocarcinoma
     Dosage: 25000.0 UI C/7 DIAS
     Route: 048
     Dates: start: 20240112
  10. HYDROCHLOROTHIAZIDE\OLMESARTAN MEDOXOMIL [Concomitant]
     Active Substance: HYDROCHLOROTHIAZIDE\OLMESARTAN MEDOXOMIL
     Indication: Hypertension
     Dosage: 40.0 MG DE
     Route: 048
     Dates: start: 20221229

REACTIONS (2)
  - Transient ischaemic attack [Recovering/Resolving]
  - Dysarthria [Recovering/Resolving]

NARRATIVE: CASE EVENT DATE: 20240722
